FAERS Safety Report 24608264 (Version 1)
Quarter: 2024Q4

REPORT INFORMATION
  Report Type: Report from Study
  Country: CA (occurrence: CA)
  Receive Date: 20241112
  Receipt Date: 20241112
  Transmission Date: 20250115
  Serious: Yes (Life-Threatening, Hospitalization, Other)
  Sender: JOHNSON AND JOHNSON
  Company Number: CA-JNJFOC-20241117039

PATIENT
  Age: 42 Year
  Sex: Female
  Weight: 70 kg

DRUGS (1)
  1. REMICADE [Suspect]
     Active Substance: INFLIXIMAB
     Indication: Crohn^s disease
     Route: 041
     Dates: start: 20160923

REACTIONS (12)
  - Road traffic accident [Unknown]
  - Sternal fracture [Unknown]
  - Traumatic shock [Unknown]
  - Haemorrhage [Unknown]
  - Intestinal resection [Unknown]
  - Contusion [Unknown]
  - Mobility decreased [Unknown]
  - Back pain [Unknown]
  - Decreased appetite [Unknown]
  - Memory impairment [Unknown]
  - Disturbance in attention [Unknown]
  - Depression [Unknown]

NARRATIVE: CASE EVENT DATE: 20241001
